FAERS Safety Report 5322791-8 (Version None)
Quarter: 2007Q2

REPORT INFORMATION
  Report Type: 
  Country: None (occurrence: None)
  Receive Date: 20070511
  Receipt Date: 20070509
  Transmission Date: 20071010
  Serious: Yes (Other)
  Sender: FDA-Public Use
  Company Number: JP-BOEHRINGER INGELHEIM PHARMACEUTICALS, INC.-2007-BP-06407NB

PATIENT

DRUGS (1)
  1. PERSANTIN [Suspect]
     Route: 065

REACTIONS (1)
  - SHOCK [None]
